FAERS Safety Report 9164478 (Version 1)
Quarter: 2013Q1

REPORT INFORMATION
  Report Type: Spontaneous
  Country: US (occurrence: None)
  Receive Date: 20130204
  Receipt Date: 20130204
  Transmission Date: 20140127
  Serious: Yes (Other)
  Sender: FDA-Public Use
  Company Number: 163-21880-12120520

PATIENT
  Age: 69 Year
  Sex: Male
  Weight: 78.02 kg

DRUGS (7)
  1. REVLIMID (LENALIDOMIDE) [Suspect]
     Indication: PLASMA CELL MYELOMA
     Dosage: 21 IN 28 D
     Route: 048
     Dates: start: 20110131
  2. OTC MENS PROSTATE HEALTH (SEREONA REPENS) (UNKNOWN [Concomitant]
  3. ASA (ACETYLSALICYCLIC ACIDE) (ENTERIC-COATED TABLET) [Concomitant]
  4. SIMVASTATIN [Concomitant]
  5. CALCIUM (CALCIUM) (UNKNOWN0 [Concomitant]
  6. VITAMINS (VITAMINS) (UNKNOWN) [Concomitant]
  7. NAPROXEN (NAPROXEN) (TABLETS) [Concomitant]

REACTIONS (5)
  - Blood urine present [None]
  - Prostatitis [None]
  - Prostatic haemorrhage [None]
  - Megacolon [None]
  - Constipation [None]
